FAERS Safety Report 9309979 (Version 2)
Quarter: 2013Q3

REPORT INFORMATION
  Report Type: Spontaneous
  Country: US (occurrence: US)
  Receive Date: 20130527
  Receipt Date: 20130718
  Transmission Date: 20140515
  Serious: Yes (Hospitalization)
  Sender: FDA-Public Use
  Company Number: US-009507513-1305USA013362

PATIENT
  Age: 65 Year
  Sex: Male

DRUGS (2)
  1. NOXAFIL [Suspect]
     Indication: ZYGOMYCOSIS
     Dosage: 400 MG, Q12H AT 9AM AND 9PM
     Route: 048
     Dates: start: 20130518
  2. NOXAFIL [Suspect]
     Dosage: 400 MG, BID  AFTER BREAKFASR AND AFTER DINNER
     Route: 048

REACTIONS (4)
  - Retching [Not Recovered/Not Resolved]
  - Nausea [Not Recovered/Not Resolved]
  - Wrong technique in drug usage process [Unknown]
  - Regurgitation [Not Recovered/Not Resolved]
